FAERS Safety Report 24625428 (Version 1)
Quarter: 2024Q4

REPORT INFORMATION
  Report Type: Spontaneous
  Country: US (occurrence: None)
  Receive Date: 20241115
  Receipt Date: 20241115
  Transmission Date: 20250115
  Serious: Yes (Hospitalization)
  Sender: Public
  Company Number: None

PATIENT
  Age: 46 Year
  Sex: Male

DRUGS (1)
  1. DOCETAXEL [Suspect]
     Active Substance: DOCETAXEL
     Indication: Breast cancer
     Dates: start: 20240529, end: 20240529

REACTIONS (5)
  - Rhabdomyolysis [None]
  - Myalgia [None]
  - Myositis [None]
  - Paraneoplastic myelopathy [None]
  - Oedema peripheral [None]

NARRATIVE: CASE EVENT DATE: 20240529
